FAERS Safety Report 7031439-6 (Version None)
Quarter: 2010Q4

REPORT INFORMATION
  Report Type: 
  Country: None (occurrence: None)
  Receive Date: 20101006
  Receipt Date: 20100927
  Transmission Date: 20110411
  Serious: Yes (Hospitalization, Other)
  Sender: FDA-Public Use
  Company Number: US-CELGENEUS-163-21880-10080124

PATIENT
  Age: 73 Year
  Sex: Male
  Weight: 60.6 kg

DRUGS (8)
  1. REVLIMID [Suspect]
     Route: 048
     Dates: start: 20100301
  2. REVLIMID [Suspect]
     Route: 048
     Dates: start: 20100707, end: 20100720
  3. DOCETAXEL [Suspect]
     Route: 051
     Dates: start: 20100301
  4. DOCETAXEL [Suspect]
     Route: 051
     Dates: start: 20100707, end: 20100707
  5. BEVACIZUMAB [Suspect]
     Route: 051
     Dates: start: 20100301
  6. BEVACIZUMAB [Suspect]
     Route: 051
     Dates: start: 20100707, end: 20100707
  7. PREDNISONE [Suspect]
     Route: 048
     Dates: start: 20100301
  8. PREDNISONE [Suspect]
     Route: 048
     Dates: start: 20100707, end: 20100725

REACTIONS (3)
  - NEUTROPHIL COUNT DECREASED [None]
  - ORAL PAIN [None]
  - OSTEONECROSIS [None]
